FAERS Safety Report 15805580 (Version 3)
Quarter: 2019Q1

REPORT INFORMATION
  Report Type: Report from Study
  Country: None (occurrence: FR)
  Receive Date: 20190110
  Receipt Date: 20190319
  Transmission Date: 20190417
  Serious: Yes (Other)
  Sender: FDA-Public Use
  Company Number: FR-ABBVIE-19S-056-2618303-00

PATIENT
  Age: 77 Year
  Sex: Female
  Weight: 45 kg

DRUGS (15)
  1. MANTADIX [Concomitant]
     Active Substance: AMANTADINE HYDROCHLORIDE
     Indication: PARKINSON^S DISEASE
     Route: 048
  2. FUROSEMIDE. [Concomitant]
     Active Substance: FUROSEMIDE
     Indication: ATRIAL FIBRILLATION
     Route: 048
  3. FUROSEMIDE. [Concomitant]
     Active Substance: FUROSEMIDE
     Indication: DEEP VEIN THROMBOSIS
  4. DUODOPA [Suspect]
     Active Substance: CARBIDOPA\LEVODOPA
     Dosage: FROM 5 AM TO 2PM=3.1 ML/H. FROM 2 PM TO 9PM=3.3 ML/H. IN TOTAL: 1020 MG/J
     Route: 050
     Dates: start: 20160905
  5. BISOPROLOL [Concomitant]
     Active Substance: BISOPROLOL
     Indication: ATRIAL FIBRILLATION
     Route: 048
  6. FUROSEMIDE. [Concomitant]
     Active Substance: FUROSEMIDE
     Indication: LEFT VENTRICULAR FAILURE
  7. LAMALINE 50/15/50 [Concomitant]
     Indication: PAIN
     Dosage: AS NEEDED
     Route: 048
  8. NEUPRO [Concomitant]
     Active Substance: ROTIGOTINE
     Indication: PARKINSON^S DISEASE
     Route: 062
  9. BISOPROLOL [Concomitant]
     Active Substance: BISOPROLOL
     Indication: LEFT VENTRICULAR FAILURE
  10. FOOD SUPPLEMENT [Concomitant]
     Indication: CACHEXIA
     Route: 065
  11. ELIQUIS [Concomitant]
     Active Substance: APIXABAN
     Indication: ATRIAL FIBRILLATION
     Route: 048
  12. ELIQUIS [Concomitant]
     Active Substance: APIXABAN
     Indication: DEEP VEIN THROMBOSIS
  13. ELIQUIS [Concomitant]
     Active Substance: APIXABAN
     Indication: LEFT VENTRICULAR FAILURE
  14. DUODOPA [Suspect]
     Active Substance: CARBIDOPA\LEVODOPA
     Indication: PARKINSON^S DISEASE
     Dosage: MD : 5 ML ED : UNK  FLOW RATE DURING THE DAY: 3.1 ML/H DAY RHYTHM : 2
     Route: 050
     Dates: start: 20160318
  15. BISOPROLOL [Concomitant]
     Active Substance: BISOPROLOL
     Indication: DEEP VEIN THROMBOSIS

REACTIONS (3)
  - Skin ulcer [Not Recovered/Not Resolved]
  - Skin lesion [Not Recovered/Not Resolved]
  - Freezing phenomenon [Recovering/Resolving]

NARRATIVE: CASE EVENT DATE: 20181025
